FAERS Safety Report 8488187-5 (Version None)
Quarter: 2012Q3

REPORT INFORMATION
  Report Type: 
  Country: None (occurrence: None)
  Receive Date: 20120705
  Receipt Date: 20120627
  Transmission Date: 20120928
  Serious: Yes (Hospitalization)
  Sender: FDA-Public Use
  Company Number: US-ASTELLAS-2012US005283

PATIENT
  Sex: Male

DRUGS (8)
  1. LASIX [Concomitant]
     Indication: PRODUCT USED FOR UNKNOWN INDICATION
     Dosage: UNK
     Route: 065
  2. PROGRAF [Suspect]
     Dosage: UNK
     Route: 065
     Dates: start: 20100914
  3. MIRALAX                            /00754501/ [Concomitant]
     Indication: PRODUCT USED FOR UNKNOWN INDICATION
     Dosage: UNK
     Route: 065
  4. LANSOPRAZOLE [Concomitant]
     Indication: PRODUCT USED FOR UNKNOWN INDICATION
     Dosage: UNK
     Route: 065
  5. PREDNISONE [Concomitant]
     Indication: PRODUCT USED FOR UNKNOWN INDICATION
     Dosage: UNK
     Route: 065
  6. LABETALOL HCL [Concomitant]
     Indication: PRODUCT USED FOR UNKNOWN INDICATION
     Dosage: UNK
     Route: 065
  7. NORVASC [Concomitant]
     Indication: PRODUCT USED FOR UNKNOWN INDICATION
     Dosage: UNK
     Route: 065
  8. PROGRAF [Suspect]
     Indication: NEPHROTIC SYNDROME
     Dosage: 3.5 MG, BID
     Route: 048

REACTIONS (7)
  - DRUG INEFFECTIVE FOR UNAPPROVED INDICATION [None]
  - NEPHROTIC SYNDROME [None]
  - TREATMENT NONCOMPLIANCE [None]
  - OFF LABEL USE [None]
  - WEIGHT INCREASED [None]
  - OEDEMA [None]
  - CHEST PAIN [None]
